FAERS Safety Report 9926424 (Version 1)
Quarter: 2014Q1

REPORT INFORMATION
  Report Type: Spontaneous
  Country: US (occurrence: US)
  Receive Date: 20140226
  Receipt Date: 20140226
  Transmission Date: 20141002
  Serious: No
  Sender: FDA-Public Use
  Company Number: US-AMGEN-USASP2013068771

PATIENT
  Age: 28 Year
  Sex: Female
  Weight: 58.96 kg

DRUGS (4)
  1. IBUPROFEN [Concomitant]
     Dosage: 200 MG, UNK
  2. MULTIVITAMINS, PLAIN [Concomitant]
     Dosage: UNK
  3. ENBREL [Suspect]
     Indication: PRODUCT USED FOR UNKNOWN INDICATION
     Dosage: 50 MG, QWK
     Route: 058
  4. YAZ [Concomitant]
     Dosage: 3-0.02 MG, UNK

REACTIONS (2)
  - Injection site pain [Unknown]
  - Sinusitis [Unknown]
